FAERS Safety Report 6288590-8 (Version None)
Quarter: 2009Q3

REPORT INFORMATION
  Report Type: 
  Country: None (occurrence: None)
  Receive Date: 20090729
  Receipt Date: 20090721
  Transmission Date: 20100115
  Serious: Yes (Other)
  Sender: FDA-Public Use
  Company Number: AU-JNJFOC-20090706847

PATIENT
  Sex: Male

DRUGS (1)
  1. TOPAMAX [Suspect]
     Indication: EPILEPSY
     Route: 048

REACTIONS (6)
  - ALOPECIA [None]
  - HAIR GROWTH ABNORMAL [None]
  - HORMONE LEVEL ABNORMAL [None]
  - LIBIDO INCREASED [None]
  - MENTAL DISORDER [None]
  - MOOD SWINGS [None]
